FAERS Safety Report 22015376 (Version 2)
Quarter: 2023Q1

REPORT INFORMATION
  Report Type: Spontaneous
  Country: US (occurrence: US)
  Receive Date: 20230221
  Receipt Date: 20230304
  Transmission Date: 20230418
  Serious: Yes (Other)
  Sender: FDA-Public Use
  Company Number: US-AUROBINDO-AUR-APL-2023-007430

PATIENT
  Age: 72 Year
  Sex: Male

DRUGS (9)
  1. VASOPRESSIN [Suspect]
     Active Substance: VASOPRESSIN
     Indication: Septic shock
     Dosage: 0.04 UNITS/MIN
     Route: 065
  2. VASOPRESSIN [Suspect]
     Active Substance: VASOPRESSIN
     Indication: Pseudomonas infection
  3. DOBUTAMINE [Suspect]
     Active Substance: DOBUTAMINE HYDROCHLORIDE
     Indication: Septic shock
     Dosage: 12.5 ?G/ KG/MIN FOR 47HOURS
     Route: 065
  4. DOBUTAMINE [Suspect]
     Active Substance: DOBUTAMINE HYDROCHLORIDE
     Indication: Pseudomonas infection
  5. EPINEPHRINE [Suspect]
     Active Substance: EPINEPHRINE
     Indication: Septic shock
     Dosage: 0.3 ?G/KG/MIN
     Route: 065
  6. EPINEPHRINE [Suspect]
     Active Substance: EPINEPHRINE
     Indication: Pseudomonas infection
  7. NOREPINEPHRINE [Suspect]
     Active Substance: NOREPINEPHRINE
     Indication: Septic shock
     Dosage: 0.3 ?G/KG/MIN
     Route: 065
  8. NOREPINEPHRINE [Suspect]
     Active Substance: NOREPINEPHRINE
     Indication: Pseudomonas infection
  9. HYDROXOCOBALAMIN [Concomitant]
     Active Substance: HYDROXOCOBALAMIN
     Indication: Hypotension
     Dosage: UNK
     Route: 065

REACTIONS (1)
  - Drug ineffective [Unknown]
